FAERS Safety Report 6089324-2 (Version None)
Quarter: 2009Q1

REPORT INFORMATION
  Report Type: 
  Country: None (occurrence: None)
  Receive Date: 20090224
  Receipt Date: 20090210
  Transmission Date: 20090719
  Serious: Yes (Hospitalization)
  Sender: FDA-Public Use
  Company Number: PHHY2009ES04687

PATIENT
  Age: 76 Year
  Sex: Female

DRUGS (5)
  1. SINTROM [Interacting]
     Indication: ATRIAL FIBRILLATION
     Dosage: 2 MG, QD
     Route: 048
     Dates: start: 20040101, end: 20081108
  2. IBUPROFEN [Interacting]
     Indication: PAIN
     Dosage: UNK
     Route: 048
     Dates: start: 20081001
  3. DIOVAN HCT [Suspect]
     Indication: ATRIAL FIBRILLATION
     Dosage: 80/12.5 MG ONCE DAILY
     Dates: start: 20040101, end: 20081108
  4. EMCONCOR [Concomitant]
     Indication: ATRIAL FIBRILLATION
     Dosage: 2.5 MG DAILY
     Route: 048
     Dates: start: 20000101, end: 20081108
  5. EUTIROX [Concomitant]
     Indication: HYPOTHYROIDISM
     Dosage: 25 MG DAILY
     Route: 048
     Dates: start: 20040101

REACTIONS (6)
  - ARTHRITIS [None]
  - DEFORMITY [None]
  - DRUG INTERACTION [None]
  - ENDOSCOPY UPPER GASTROINTESTINAL TRACT [None]
  - EROSIVE DUODENITIS [None]
  - UPPER GASTROINTESTINAL HAEMORRHAGE [None]
